FAERS Safety Report 20244282 (Version 1)
Quarter: 2021Q4

REPORT INFORMATION
  Report Type: Spontaneous
  Country: FR (occurrence: FR)
  Receive Date: 20211229
  Receipt Date: 20211229
  Transmission Date: 20220303
  Serious: Yes (Hospitalization)
  Sender: FDA-Public Use
  Company Number: FR-Axellia-003938

PATIENT
  Sex: Male

DRUGS (2)
  1. CASPOFUNGIN [Suspect]
     Active Substance: CASPOFUNGIN
     Indication: Candida infection
     Dosage: OVER 1 H (25 MG/M2 /D)
  2. FLUCONAZOLE [Concomitant]
     Active Substance: FLUCONAZOLE

REACTIONS (4)
  - Overdose [Unknown]
  - Therapeutic drug monitoring analysis incorrectly performed [Unknown]
  - Product preparation error [Unknown]
  - Hepatic function abnormal [Unknown]
